FAERS Safety Report 7423546-0 (Version None)
Quarter: 2011Q2

REPORT INFORMATION
  Report Type: 
  Country: None (occurrence: None)
  Receive Date: 20110419
  Receipt Date: 20110411
  Transmission Date: 20111010
  Serious: Yes (Hospitalization)
  Sender: FDA-Public Use
  Company Number: GB-ROCHE-770862

PATIENT
  Sex: Male
  Weight: 83.1 kg

DRUGS (11)
  1. BLINDED BEVACIZUMAB [Suspect]
     Indication: GLIOBLASTOMA
     Dosage: LAST DOSE PRIOR TO SAE: 7 APR 2011. FREQUENCY: 30 MINS
     Route: 042
  2. TEMOZOLOMIDE [Suspect]
     Indication: GLIOBLASTOMA
     Dosage: DOSAGE FORM: 20X100 MG, FREQ: 5 X DAYS LAST DOSE PRIOR TO SAE:07 APR 2010
     Route: 048
     Dates: start: 20101229
  3. IBUPROFEN [Concomitant]
     Dates: start: 20110127
  4. VITAMIN TAB [Concomitant]
  5. METOCLOPRAMIDE [Concomitant]
     Dates: start: 20101230
  6. CETIRIZINE HCL [Concomitant]
     Dates: start: 20070101
  7. DIFFLAM ORAL RINSE [Concomitant]
     Dates: start: 20101230
  8. ONDANSETRON [Concomitant]
     Dates: start: 20110202
  9. NIZORAL [Concomitant]
     Route: 061
     Dates: start: 20110407
  10. RANITIDINE [Concomitant]
     Dosage: START DATE: 27 APR 2011
  11. PARACETAMOL [Concomitant]
     Dates: start: 20100101

REACTIONS (1)
  - CONVULSION [None]
